FAERS Safety Report 8266170-2 (Version None)
Quarter: 2012Q2

REPORT INFORMATION
  Report Type: 
  Country: None (occurrence: None)
  Receive Date: 20120406
  Receipt Date: 20120402
  Transmission Date: 20120825
  Serious: Yes (Other)
  Sender: FDA-Public Use
  Company Number: PHHY2012JP029181

PATIENT
  Age: 52 Year
  Sex: Female

DRUGS (1)
  1. EXJADE [Suspect]
     Dosage: UNK UKN, UNK
     Route: 048
     Dates: start: 20101001

REACTIONS (2)
  - ERYTHEMA MULTIFORME [None]
  - LIVER INJURY [None]
